FAERS Safety Report 7301679-7 (Version None)
Quarter: 2011Q1

REPORT INFORMATION
  Report Type: 
  Country: None (occurrence: None)
  Receive Date: 20110218
  Receipt Date: 20110214
  Transmission Date: 20110831
  Serious: Yes (Hospitalization)
  Sender: FDA-Public Use
  Company Number: US-US-EMD SERONO, INC.-7042417

PATIENT
  Sex: Female

DRUGS (2)
  1. REBIF [Suspect]
     Indication: MULTIPLE SCLEROSIS
     Route: 058
     Dates: start: 20040908, end: 20050101
  2. IBUPROFEN [Concomitant]
     Indication: HEADACHE

REACTIONS (4)
  - VOMITING [None]
  - INJECTION SITE PAIN [None]
  - BLOOD POTASSIUM DECREASED [None]
  - GASTROINTESTINAL INFLAMMATION [None]
